FAERS Safety Report 4412364-3 (Version None)
Quarter: 2004Q2

REPORT INFORMATION
  Report Type: 
  Country: None (occurrence: None)
  Receive Date: 20040630
  Receipt Date: 20040504
  Transmission Date: 20050107
  Serious: No
  Sender: FDA-Public Use
  Company Number: 04P-163-0259585-00

PATIENT
  Age: 67 Year
  Sex: Female
  Weight: 56.6996 kg

DRUGS (12)
  1. HUMIRA [Suspect]
     Indication: RHEUMATOID ARTHRITIS
     Dosage: 40 MG 1 IN 2 WK SUBCUTANEOUS
     Route: 058
     Dates: start: 20040504
  2. METHOTREXATE [Concomitant]
  3. CEFADROXIL [Concomitant]
  4. FOLIC ACID [Concomitant]
  5. CLONAZEPAM [Concomitant]
  6. PREDNISONE [Concomitant]
  7. CLIMARCE [Concomitant]
  8. ESOMEPRAZOLE [Concomitant]
  9. HDYROCODONE [Concomitant]
  10. RISEDRONATE SODIUM [Concomitant]
  11. TELMISARTAN [Concomitant]
  12. FENTANYL [Concomitant]

REACTIONS (1)
  - INJECTION SITE PAIN [None]
